FAERS Safety Report 20299004 (Version 3)
Quarter: 2024Q3

REPORT INFORMATION
  Report Type: Spontaneous
  Country: US (occurrence: US)
  Receive Date: 20220105
  Receipt Date: 20240702
  Transmission Date: 20241017
  Serious: No
  Sender: ELI LILLY AND CO
  Company Number: US-ELI_LILLY_AND_COMPANY-US202112013375

PATIENT
  Age: 71 Year
  Sex: Male

DRUGS (2)
  1. HUMULIN N [Suspect]
     Active Substance: INSULIN HUMAN
     Indication: Product used for unknown indication
     Dosage: 30 U, DAILY
     Route: 065
     Dates: start: 20210331
  2. HUMULIN N [Suspect]
     Active Substance: INSULIN HUMAN
     Dosage: 60 U, DAILY
     Route: 065
     Dates: end: 20230109

REACTIONS (3)
  - Blood glucose increased [Unknown]
  - Tremor [Unknown]
  - Product dose omission issue [Unknown]
